FAERS Safety Report 25047018 (Version 1)
Quarter: 2025Q1

REPORT INFORMATION
  Report Type: Spontaneous
  Country: AT (occurrence: AT)
  Receive Date: 20250306
  Receipt Date: 20250306
  Transmission Date: 20250409
  Serious: Yes (Hospitalization, Other)
  Sender: PFIZER
  Company Number: AT-ROCHE-10000209488

PATIENT
  Age: 27 Year
  Sex: Female

DRUGS (2)
  1. RITUXIMAB [Suspect]
     Active Substance: RITUXIMAB
  2. TYSABRI [Suspect]
     Active Substance: NATALIZUMAB

REACTIONS (7)
  - Infection [Unknown]
  - CSF oligoclonal band present [Unknown]
  - Spinal disorder [Unknown]
  - Disease progression [Unknown]
  - Pleocytosis [Unknown]
  - Anti-aquaporin-4 antibody positive [Unknown]
  - Maternal exposure during pregnancy [Unknown]
